FAERS Safety Report 4590975-2 (Version None)
Quarter: 2005Q1

REPORT INFORMATION
  Report Type: 
  Country: None (occurrence: None)
  Receive Date: 20050222
  Receipt Date: 20050222
  Transmission Date: 20050727
  Serious: Yes (Hospitalization)
  Sender: FDA-Public Use
  Company Number: None

PATIENT
  Age: 53 Year
  Sex: Female

DRUGS (5)
  1. LISINOPRIL [Suspect]
     Indication: HYPERTENSION
     Dosage: 40MG PO QD
     Route: 048
     Dates: start: 19980127, end: 20050217
  2. ESTROGENS [Concomitant]
  3. SIMVASTATIN [Concomitant]
  4. HYDROXYZINE [Concomitant]
  5. METRONIDAZOLE [Concomitant]

REACTIONS (3)
  - SPEECH DISORDER [None]
  - SWELLING FACE [None]
  - SWOLLEN TONGUE [None]
